FAERS Safety Report 24340118 (Version 3)
Quarter: 2024Q4

REPORT INFORMATION
  Report Type: Spontaneous
  Country: FR (occurrence: FR)
  Receive Date: 20240919
  Receipt Date: 20241018
  Transmission Date: 20250115
  Serious: Yes (Hospitalization)
  Sender: JOHNSON AND JOHNSON
  Company Number: None

PATIENT
  Age: 69 Year
  Sex: Male
  Weight: 95 kg

DRUGS (13)
  1. ERLEADA [Suspect]
     Active Substance: APALUTAMIDE
     Indication: Prostate cancer metastatic
     Route: 048
     Dates: start: 20231120
  2. TRIPTORELIN PAMOATE [Suspect]
     Active Substance: TRIPTORELIN PAMOATE
     Indication: Prostate cancer metastatic
     Route: 058
     Dates: start: 20231120, end: 202408
  3. SILODOSIN [Concomitant]
     Active Substance: SILODOSIN
     Dates: start: 20230410
  4. RAMIPRIL [Concomitant]
     Active Substance: RAMIPRIL
  5. ASPIRIN\CLOPIDOGREL [Concomitant]
     Active Substance: ASPIRIN\CLOPIDOGREL
  6. AMLODIPINE [Concomitant]
     Active Substance: AMLODIPINE BESYLATE
  7. FOLIC ACID [Concomitant]
     Active Substance: FOLIC ACID
     Route: 065
  8. ROSUVASTATIN [Concomitant]
     Active Substance: ROSUVASTATIN
  9. METFORMIN [Concomitant]
     Active Substance: METFORMIN HYDROCHLORIDE
  10. BISOPROLOL FUMARATE [Concomitant]
     Active Substance: BISOPROLOL FUMARATE
  11. REPAGLINIDE [Concomitant]
     Active Substance: REPAGLINIDE
  12. PANTOPRAZOLE [Concomitant]
     Active Substance: PANTOPRAZOLE
  13. FIRMAGON [Concomitant]
     Active Substance: DEGARELIX ACETATE
     Dates: start: 20240821

REACTIONS (1)
  - Ischaemic stroke [Recovering/Resolving]

NARRATIVE: CASE EVENT DATE: 20240808
